FAERS Safety Report 9295329 (Version 1)
Quarter: 2013Q1

REPORT INFORMATION
  Report Type: Spontaneous
  Country: US (occurrence: None)
  Receive Date: 20121227
  Receipt Date: 20121227
  Transmission Date: 20140127
  Serious: Yes (Hospitalization)
  Sender: FDA-Public Use
  Company Number: PHEH2011US008827

PATIENT
  Age: 46 Year
  Sex: Female
  Weight: 95.8 kg

DRUGS (6)
  1. EXJADE [Suspect]
     Indication: SICKLE CELL ANAEMIA
     Route: 048
     Dates: start: 20110915
  2. HYDROXYUREA (HYDROXYCARBAMIDE) [Concomitant]
  3. METFORMIN (METFORMIN) [Concomitant]
  4. FOLIC ACID (FOLIC ACID) [Concomitant]
  5. LIDODERM (LIDOCAINE) [Concomitant]
  6. DILAUDID (HYDROMORPHONE HYDROCHLORIDE) [Concomitant]

REACTIONS (2)
  - Sickle cell anaemia with crisis [None]
  - Pain [None]
